FAERS Safety Report 8360510-1 (Version None)
Quarter: 2012Q2

REPORT INFORMATION
  Report Type: 
  Country: None (occurrence: None)
  Receive Date: 20120515
  Receipt Date: 20120507
  Transmission Date: 20120825
  Serious: Yes (Other)
  Sender: FDA-Public Use
  Company Number: JP-SANOFI-AVENTIS-2012SA026846

PATIENT

DRUGS (1)
  1. LASIX [Suspect]
     Route: 048

REACTIONS (1)
  - PSEUDO-BARTTER SYNDROME [None]
